FAERS Safety Report 25130544 (Version 1)
Quarter: 2025Q1

REPORT INFORMATION
  Report Type: Report from Study
  Country: US (occurrence: US)
  Receive Date: 20250327
  Receipt Date: 20250327
  Transmission Date: 20250408
  Serious: Yes (Other)
  Sender: ALEXION PHARMACEUTICALS
  Company Number: US-AstraZeneca-CH-00831843A

PATIENT

DRUGS (1)
  1. OLAPARIB [Suspect]
     Active Substance: OLAPARIB
     Route: 065

REACTIONS (5)
  - Tumour marker increased [Unknown]
  - Breast cancer [Unknown]
  - Abdominal pain upper [Unknown]
  - Dyspepsia [Unknown]
  - Abnormal faeces [Unknown]
